FAERS Safety Report 13424862 (Version 1)
Quarter: 2017Q2

REPORT INFORMATION
  Report Type: Spontaneous
  Country: RU (occurrence: RU)
  Receive Date: 20170410
  Receipt Date: 20170410
  Transmission Date: 20170830
  Serious: Yes (Other)
  Sender: FDA-Public Use
  Company Number: PHHY2017RU040865

PATIENT
  Age: 86 Year
  Sex: Female

DRUGS (5)
  1. IMATINIB [Suspect]
     Active Substance: IMATINIB
     Dosage: 300 MG, QD
     Route: 065
  2. DASATINIB [Suspect]
     Active Substance: DASATINIB
     Indication: CHRONIC MYELOID LEUKAEMIA
     Dosage: 20 MG, TIW
     Route: 065
     Dates: start: 20131107
  3. BOSUTINIB [Suspect]
     Active Substance: BOSUTINIB
     Indication: CHRONIC MYELOID LEUKAEMIA
     Dosage: 250 MG, QD
     Route: 065
     Dates: start: 20160607
  4. NILOTINIB [Suspect]
     Active Substance: NILOTINIB
     Indication: CHRONIC MYELOID LEUKAEMIA
     Dosage: 800 MG, QD
     Route: 065
     Dates: start: 20111222, end: 20170303
  5. IMATINIB [Suspect]
     Active Substance: IMATINIB
     Indication: CHRONIC MYELOID LEUKAEMIA
     Dosage: 400 MG, QD
     Route: 065
     Dates: start: 20110518

REACTIONS (9)
  - Diarrhoea [Unknown]
  - Arthralgia [Unknown]
  - Cardiac disorder [Unknown]
  - Hallucination [Unknown]
  - Hypertension [Unknown]
  - Fatigue [Unknown]
  - Arrhythmia [Unknown]
  - Nausea [Unknown]
  - Blood pressure abnormal [Unknown]
